FAERS Safety Report 13414156 (Version 1)
Quarter: 2017Q2

REPORT INFORMATION
  Report Type: Spontaneous
  Country: EG (occurrence: EG)
  Receive Date: 20170407
  Receipt Date: 20170407
  Transmission Date: 20170830
  Serious: Yes (Other)
  Sender: FDA-Public Use
  Company Number: EG-PFIZER INC-2017142035

PATIENT
  Age: 85 Year
  Sex: Female

DRUGS (4)
  1. RISEK /00661201/ [Concomitant]
     Dosage: 40 MG, BID
     Route: 050
     Dates: start: 20170130, end: 20170203
  2. MUCOSTA [Concomitant]
     Active Substance: REBAMIPIDE
     Dosage: UNK
  3. CONTROLOC [Suspect]
     Active Substance: PANTOPRAZOLE SODIUM
     Dosage: 40 MG, BID
     Route: 048
     Dates: start: 20170130, end: 20170203
  4. HIPAMAX PLUS [Concomitant]
     Dosage: UNK

REACTIONS (3)
  - Cough [Unknown]
  - Medication error [Unknown]
  - Pneumonia [Unknown]
